FAERS Safety Report 21400984 (Version 1)
Quarter: 2022Q4

REPORT INFORMATION
  Report Type: Spontaneous
  Country: IT (occurrence: IT)
  Receive Date: 20221003
  Receipt Date: 20221003
  Transmission Date: 20230112
  Serious: Yes (Other)
  Sender: FDA-Public Use
  Company Number: IT-SAMSUNG BIOEPIS-SB-2022-24663

PATIENT
  Sex: Female
  Weight: 72 kg

DRUGS (1)
  1. IMRALDI [Suspect]
     Active Substance: ADALIMUMAB
     Indication: Product used for unknown indication
     Dosage: FREQUENCY: CYCLICAL
     Route: 058
     Dates: start: 20200101, end: 20220609

REACTIONS (2)
  - Condition aggravated [Unknown]
  - Therapeutic product effect decreased [Unknown]
